FAERS Safety Report 5969546-9 (Version None)
Quarter: 2008Q4

REPORT INFORMATION
  Report Type: 
  Country: None (occurrence: None)
  Receive Date: 20081126
  Receipt Date: 20081118
  Transmission Date: 20090506
  Serious: Yes (Hospitalization, Disabling, Other)
  Sender: FDA-Public Use
  Company Number: DE-PFIZER INC-2008068163

PATIENT
  Sex: Female
  Weight: 67 kg

DRUGS (4)
  1. AROMASIN [Suspect]
     Indication: BREAST CANCER
     Route: 048
     Dates: start: 20040801
  2. CALCIUM [Concomitant]
  3. VITAMIN D [Concomitant]
  4. BONDRONAT ^ORION^ [Concomitant]
     Indication: OSTEOPOROSIS PROPHYLAXIS
     Dosage: DAILY DOSE:6MG-FREQ:EVERY THREE MONTHS
     Route: 042

REACTIONS (4)
  - ARTHRALGIA [None]
  - BONE PAIN [None]
  - CARPAL TUNNEL SYNDROME [None]
  - TENDONITIS [None]
